FAERS Safety Report 17429436 (Version 1)
Quarter: 2020Q1

REPORT INFORMATION
  Report Type: Spontaneous
  Country: US (occurrence: US)
  Receive Date: 20200203
  Receipt Date: 20200203
  Transmission Date: 20200409
  Serious: No
  Sender: FDA-Public Use
  Company Number: None

PATIENT
  Age: 36 Year
  Sex: Male

DRUGS (1)
  1. INFLECTRA [Suspect]
     Active Substance: INFLIXIMAB-DYYB
     Indication: CROHN^S DISEASE
     Dosage: ?          OTHER FREQUENCY:WK0,2,4THENQ4WKS;?
     Route: 042
     Dates: start: 20200124, end: 20200124

REACTIONS (1)
  - Pruritus [None]

NARRATIVE: CASE EVENT DATE: 20200124
